FAERS Safety Report 4551613-8 (Version None)
Quarter: 2005Q1

REPORT INFORMATION
  Report Type: 
  Country: None (occurrence: None)
  Receive Date: 20050113
  Receipt Date: 20050105
  Transmission Date: 20050727
  Serious: Yes (Other)
  Sender: FDA-Public Use
  Company Number: US-GLAXOSMITHKLINE-A0539387A

PATIENT
  Age: 29 Year
  Sex: Male
  Weight: 66.4 kg

DRUGS (10)
  1. BC ALLERGY SINUS HEADACHE POWDER [Suspect]
     Indication: NASOPHARYNGITIS
     Route: 048
     Dates: start: 20050104, end: 20050104
  2. BC HEADACHE [Suspect]
     Indication: SINUS HEADACHE
     Dosage: 2PACK PER DAY
     Route: 048
     Dates: start: 20050101, end: 20050101
  3. EXCEDRIN (MIGRAINE) [Suspect]
     Route: 048
     Dates: start: 20050101
  4. TYLENOL [Suspect]
     Route: 048
     Dates: start: 20050101
  5. ALKA-SELTZER COLD + FLU [Suspect]
     Route: 048
     Dates: start: 20050101
  6. BENADRYL [Suspect]
     Route: 048
     Dates: start: 20050101
  7. SUDAFED 12 HOUR [Suspect]
     Route: 048
     Dates: start: 20050101
  8. LORTAB [Concomitant]
     Route: 048
  9. SOMA [Concomitant]
     Route: 048
  10. XANAX [Concomitant]
     Route: 048

REACTIONS (6)
  - BLOOD GLUCOSE DECREASED [None]
  - BLOOD PRESSURE DECREASED [None]
  - DIZZINESS [None]
  - NAUSEA [None]
  - SYNCOPE [None]
  - VOMITING [None]
